FAERS Safety Report 18797500 (Version 3)
Quarter: 2021Q2

REPORT INFORMATION
  Report Type: Report from Study
  Country: US (occurrence: US)
  Receive Date: 20210127
  Receipt Date: 20210614
  Transmission Date: 20210717
  Serious: Yes (Hospitalization)
  Sender: FDA-Public Use
  Company Number: US-SUN PHARMACEUTICAL INDUSTRIES LTD-2021R1-277647

PATIENT
  Age: 84 Year
  Sex: Female

DRUGS (1)
  1. BOSENTAN. [Suspect]
     Active Substance: BOSENTAN
     Indication: PRODUCT USED FOR UNKNOWN INDICATION
     Dosage: 125 MILLIGRAM, BID
     Route: 048
     Dates: start: 201910

REACTIONS (2)
  - Cardiac pacemaker insertion [Unknown]
  - Sinus rhythm [Unknown]

NARRATIVE: CASE EVENT DATE: 20201231
